FAERS Safety Report 22198265 (Version 1)
Quarter: 2023Q2

REPORT INFORMATION
  Report Type: Spontaneous
  Country: US (occurrence: US)
  Receive Date: 20230411
  Receipt Date: 20230411
  Transmission Date: 20230721
  Serious: No
  Sender: FDA-Public Use
  Company Number: US-Kiniksa Pharmaceuticals Ltd.-2022KPU000226

PATIENT
  Age: 69 Year
  Sex: Female

DRUGS (2)
  1. ARCALYST [Suspect]
     Active Substance: RILONACEPT
     Indication: Pericarditis
     Route: 058
     Dates: start: 20210731, end: 20220322
  2. ARCALYST [Suspect]
     Active Substance: RILONACEPT
     Indication: Pericarditis

REACTIONS (5)
  - Abdominal pain [Unknown]
  - Herpes zoster [Unknown]
  - Pyrexia [Unknown]
  - Headache [Unknown]
  - Burning sensation [Unknown]

NARRATIVE: CASE EVENT DATE: 20220320
